FAERS Safety Report 5921336-9 (Version None)
Quarter: 2008Q4

REPORT INFORMATION
  Report Type: 
  Country: None (occurrence: None)
  Receive Date: 20081016
  Receipt Date: 20081008
  Transmission Date: 20090506
  Serious: Yes (Other)
  Sender: FDA-Public Use
  Company Number: TW-ABBOTT-08P-153-0479403-00

PATIENT
  Sex: Female
  Weight: 60 kg

DRUGS (1)
  1. REDUCTIL 15MG [Suspect]
     Indication: DRUG USE FOR UNKNOWN INDICATION
     Dosage: ON AND OFF
     Route: 048
     Dates: start: 20080801, end: 20080921

REACTIONS (1)
  - ABORTION INDUCED [None]
